FAERS Safety Report 21035338 (Version 2)
Quarter: 2022Q3

REPORT INFORMATION
  Report Type: Spontaneous
  Country: US (occurrence: US)
  Receive Date: 20220701
  Receipt Date: 20220719
  Transmission Date: 20221027
  Serious: No
  Sender: FDA-Public Use
  Company Number: US-MYLANLABS-2022M1047750

PATIENT
  Sex: Female
  Weight: 65.32 kg

DRUGS (1)
  1. ESTRADIOL TRANSDERMAL SYSTEM [Suspect]
     Active Substance: ESTRADIOL
     Indication: Product used for unknown indication
     Dosage: UNK, QD (0.075 MILLIGRAM PER DAY (TWICE-WEEKLY)
     Route: 062

REACTIONS (5)
  - Application site rash [Not Recovered/Not Resolved]
  - Application site erythema [Unknown]
  - Application site pruritus [Unknown]
  - Blood oestrogen increased [Unknown]
  - Wrong technique in product usage process [Unknown]
